FAERS Safety Report 13155385 (Version 2)
Quarter: 2017Q4

REPORT INFORMATION
  Report Type: Spontaneous
  Country: US (occurrence: US)
  Receive Date: 20170126
  Receipt Date: 20171215
  Transmission Date: 20180320
  Serious: No
  Sender: FDA-Public Use
  Company Number: US-ALEXION PHARMACEUTICALS INC.-A201700424

PATIENT
  Sex: Male

DRUGS (1)
  1. STRENSIQ [Suspect]
     Active Substance: ASFOTASE ALFA
     Indication: HYPOPHOSPHATASIA
     Route: 058

REACTIONS (10)
  - Blood alkaline phosphatase increased [Unknown]
  - Haematocrit decreased [Unknown]
  - Blood phosphorus increased [Unknown]
  - Lymphocyte count increased [Unknown]
  - Blood creatinine decreased [Unknown]
  - Creatinine urine decreased [Unknown]
  - Laboratory test abnormal [Unknown]
  - Neutrophil count decreased [Unknown]
  - Vitamin B6 decreased [Unknown]
  - Vitamin D decreased [Unknown]
